FAERS Safety Report 8740591 (Version 5)
Quarter: 2014Q3

REPORT INFORMATION
  Report Type: Spontaneous
  Country: US (occurrence: US)
  Receive Date: 20120823
  Receipt Date: 20140801
  Transmission Date: 20150326
  Serious: Yes (Hospitalization, Other)
  Sender: FDA-Public Use
  Company Number: US-009507513-2012SP022369

PATIENT
  Sex: Female
  Weight: 81.63 kg

DRUGS (1)
  1. NUVARING [Suspect]
     Active Substance: ETHINYL ESTRADIOL\ETONOGESTREL
     Indication: CONTRACEPTION
     Dosage: UNK
     Route: 067
     Dates: start: 20100322, end: 20100517

REACTIONS (24)
  - Gastrooesophageal reflux disease [Unknown]
  - Nonspecific reaction [Unknown]
  - Bronchitis [Not Recovered/Not Resolved]
  - Fatigue [Unknown]
  - Ligament sprain [Unknown]
  - Acute sinusitis [Unknown]
  - Stress [Unknown]
  - Abnormal weight gain [Unknown]
  - Headache [Recovering/Resolving]
  - Pleuritic pain [Unknown]
  - Anxiety [Not Recovered/Not Resolved]
  - Otitis media acute [Unknown]
  - Pulmonary embolism [Unknown]
  - Insomnia [Unknown]
  - Arthralgia [Recovering/Resolving]
  - Aspiration pleural cavity [Unknown]
  - Tympanic membrane perforation [Unknown]
  - Vulvovaginal candidiasis [Unknown]
  - Spinal osteoarthritis [Unknown]
  - Urinary tract infection [Unknown]
  - Lobar pneumonia [Unknown]
  - Depression [Unknown]
  - Migraine [Unknown]
  - Hepatosplenomegaly [Unknown]

NARRATIVE: CASE EVENT DATE: 201005
